FAERS Safety Report 15489889 (Version 1)
Quarter: 2018Q4

REPORT INFORMATION
  Report Type: Spontaneous
  Country: US (occurrence: US)
  Receive Date: 20181011
  Receipt Date: 20181011
  Transmission Date: 20190205
  Serious: No
  Sender: FDA-Public Use
  Company Number: US-OPTINOSE US, INC.-US-2018OPT000227

PATIENT
  Age: 52 Year
  Sex: Male

DRUGS (2)
  1. XHANCE [Suspect]
     Active Substance: FLUTICASONE PROPIONATE
     Dosage: 186 ?G, BID (1 SPRAY EACH NOSTRIL BID)
     Route: 045
     Dates: start: 20180808, end: 20180819
  2. XHANCE [Suspect]
     Active Substance: FLUTICASONE PROPIONATE
     Indication: PRODUCT USED FOR UNKNOWN INDICATION
     Dosage: 186 ?G, UNK
     Route: 045
     Dates: start: 201807, end: 201808

REACTIONS (3)
  - Inappropriate schedule of product administration [Unknown]
  - Rash [Recovered/Resolved]
  - Pruritus [Recovered/Resolved]

NARRATIVE: CASE EVENT DATE: 201807
